FAERS Safety Report 17029944 (Version 1)
Quarter: 2019Q4

REPORT INFORMATION
  Report Type: Spontaneous
  Country: DE (occurrence: DE)
  Receive Date: 20191114
  Receipt Date: 20191114
  Transmission Date: 20200122
  Serious: Yes (Death, Other)
  Sender: FDA-Public Use
  Company Number: DE-TEVA-2019-DE-1137166

PATIENT
  Age: 28 Year
  Sex: Female
  Weight: 120 kg

DRUGS (1)
  1. ASUMATE 20 [Suspect]
     Active Substance: ETHINYL ESTRADIOL\LEVONORGESTREL
     Indication: PRODUCT USED FOR UNKNOWN INDICATION
     Dosage: CONTAINS LEVONORGESTREL 0,10 MG AND ETHINYLESTRADIOL 0,02 MG
     Route: 048
     Dates: start: 20110612, end: 20110624

REACTIONS (1)
  - Pulmonary embolism [Fatal]

NARRATIVE: CASE EVENT DATE: 20110624
